FAERS Safety Report 20838329 (Version 2)
Quarter: 2022Q3

REPORT INFORMATION
  Report Type: Spontaneous
  Country: DE (occurrence: DE)
  Receive Date: 20220517
  Receipt Date: 20220802
  Transmission Date: 20221027
  Serious: Yes (Other)
  Sender: FDA-Public Use
  Company Number: None

PATIENT
  Age: 75 Year
  Sex: Male
  Weight: 120 kg

DRUGS (6)
  1. RISPERDAL [Suspect]
     Active Substance: RISPERIDONE
     Indication: Product used for unknown indication
     Dosage: DAILY BEFORE SLEEPING
     Route: 065
     Dates: start: 20150723
  2. MIRTAZAPINE [Concomitant]
     Active Substance: MIRTAZAPINE
  3. SPIRONOLACTONE [Concomitant]
     Active Substance: SPIRONOLACTONE
     Route: 065
  4. SERTRALINE HYDROCHLORIDE [Concomitant]
     Active Substance: SERTRALINE HYDROCHLORIDE
  5. LORAZEPAM [Concomitant]
     Active Substance: LORAZEPAM
  6. PHENPROCOUMON [Concomitant]
     Active Substance: PHENPROCOUMON
     Dosage: ACCORDING TO ^INR^
     Route: 065

REACTIONS (5)
  - Multiple system atrophy [Unknown]
  - Parkinsonism [Unknown]
  - Mobility decreased [Unknown]
  - Gait disturbance [Unknown]
  - Epididymitis [Unknown]

NARRATIVE: CASE EVENT DATE: 20150101
